FAERS Safety Report 21385196 (Version 1)
Quarter: 2022Q3

REPORT INFORMATION
  Report Type: Spontaneous
  Country: US (occurrence: US)
  Receive Date: 20220928
  Receipt Date: 20220928
  Transmission Date: 20221026
  Serious: Yes (Hospitalization, Other)
  Sender: FDA-Public Use
  Company Number: US-ALVOGEN-2022-ALVOGEN-120934

PATIENT
  Age: 37 Year
  Sex: Female

DRUGS (6)
  1. FENTANYL [Suspect]
     Active Substance: FENTANYL
     Indication: Product used for unknown indication
     Dosage: EIGHT TO TEN BAGS OF DOPE (FENTANYL, WHICH IS?TYPICALLY MIXED WITH XYLAZINE)
     Route: 042
  2. XYLAZINE [Suspect]
     Active Substance: XYLAZINE
     Indication: Product used for unknown indication
     Dosage: EIGHT TO TEN BAGS OF DOPE (FENTANYL, WHICH IS TYPICALLY MIXED WITH XYLAZINE) EVERY DAY
     Route: 042
  3. DIAMORPHINE [Suspect]
     Active Substance: DIAMORPHINE
     Indication: Product used for unknown indication
     Dosage: 10 BAGS OF INTRAVENOUS FENTANYL/HEROIN EVERY DAY
     Route: 042
  4. ALPRAZOLAM [Suspect]
     Active Substance: ALPRAZOLAM
     Indication: Product used for unknown indication
     Dosage: FIVE ALPRAZOLAM BARS EVERY DAY
  5. METHADONE [Concomitant]
     Active Substance: METHADONE HYDROCHLORIDE
     Dosage: DAILY BUT ON AN IRREGULAR BASIS
  6. FENTANYL [Suspect]
     Active Substance: FENTANYL
     Indication: Product used for unknown indication
     Dosage: 10 BAGS OF INTRAVENOUS FENTANYL/HEROIN EVERY DAY
     Route: 042

REACTIONS (11)
  - Substance abuse [Unknown]
  - Osteomyelitis acute [Unknown]
  - Abscess soft tissue [Unknown]
  - Skin ulcer [Unknown]
  - Skin necrosis [Unknown]
  - Cellulitis [Unknown]
  - Staphylococcal bacteraemia [Unknown]
  - Proteus infection [Unknown]
  - Enterobacter bacteraemia [Unknown]
  - Escherichia bacteraemia [Unknown]
  - Enterococcal infection [Unknown]
